FAERS Safety Report 6984784-4 (Version None)
Quarter: 2010Q3

REPORT INFORMATION
  Report Type: 
  Country: None (occurrence: None)
  Receive Date: 20100915
  Receipt Date: 20100908
  Transmission Date: 20110219
  Serious: Yes (Hospitalization)
  Sender: FDA-Public Use
  Company Number: JP-SANOFI-AVENTIS-2010SA054271

PATIENT
  Age: 54 Year
  Sex: Female

DRUGS (2)
  1. TAXOTERE [Suspect]
     Indication: METASTASES TO LUNG
     Route: 041
  2. TAXOTERE [Suspect]
     Dosage: TWO-WEEK ADMINISTRATION FOLLOWED BY A DRUG-FREE WEEK
     Route: 041

REACTIONS (4)
  - MALAISE [None]
  - PLEURAL EFFUSION [None]
  - SUBDURAL HYGROMA [None]
  - WHITE BLOOD CELL COUNT DECREASED [None]
